FAERS Safety Report 8343632-0 (Version None)
Quarter: 2012Q2

REPORT INFORMATION
  Report Type: 
  Country: None (occurrence: None)
  Receive Date: 20120508
  Receipt Date: 20100707
  Transmission Date: 20120825
  Serious: No
  Sender: FDA-Public Use
  Company Number: US-TEVA-2010003647

PATIENT
  Sex: Female

DRUGS (3)
  1. TREANDA [Suspect]
     Indication: MANTLE CELL LYMPHOMA
     Route: 042
  2. ALLOPURINOL [Concomitant]
  3. RITUXAN [Concomitant]

REACTIONS (1)
  - RASH [None]
